FAERS Safety Report 17275001 (Version 5)
Quarter: 2020Q4

REPORT INFORMATION
  Report Type: Report from Study
  Country: None (occurrence: US)
  Receive Date: 20200116
  Receipt Date: 20201023
  Transmission Date: 20210113
  Serious: Yes (Hospitalization, Other)
  Sender: FDA-Public Use
  Company Number: US-ABBVIE-19K-163-3165336-00

PATIENT
  Sex: Male

DRUGS (7)
  1. IMBRUVICA [Suspect]
     Active Substance: IBRUTINIB
     Route: 048
  2. IMBRUVICA [Suspect]
     Active Substance: IBRUTINIB
     Route: 048
     Dates: start: 20190907
  3. IMBRUVICA [Suspect]
     Active Substance: IBRUTINIB
     Indication: CHRONIC LYMPHOCYTIC LEUKAEMIA
     Dosage: 420 MG, QD
     Route: 048
  4. IMBRUVICA [Suspect]
     Active Substance: IBRUTINIB
     Route: 048
     Dates: start: 20190907, end: 2019
  5. IMBRUVICA [Suspect]
     Active Substance: IBRUTINIB
     Route: 048
     Dates: start: 201909
  6. BACTRIM [Concomitant]
     Active Substance: SULFAMETHOXAZOLE\TRIMETHOPRIM
     Indication: PRODUCT USED FOR UNKNOWN INDICATION
  7. IMBRUVICA [Suspect]
     Active Substance: IBRUTINIB
     Route: 048

REACTIONS (24)
  - Stoma complication [Unknown]
  - Ileostomy [Unknown]
  - Poor quality sleep [Unknown]
  - Blood creatinine increased [Unknown]
  - Vesical fistula [Unknown]
  - Fatigue [Unknown]
  - Renal disorder [Unknown]
  - Pulse abnormal [Unknown]
  - Dyspepsia [Unknown]
  - Hospitalisation [Unknown]
  - Laboratory test abnormal [Unknown]
  - Cardiac disorder [Unknown]
  - Sleep apnoea syndrome [Unknown]
  - Blood potassium increased [Unknown]
  - Malaise [Unknown]
  - Muscle spasms [Unknown]
  - Lymphocyte count increased [Unknown]
  - Purpura [Unknown]
  - Cystitis [Unknown]
  - Joint swelling [Unknown]
  - Peripheral swelling [Unknown]
  - Stomal hernia [Unknown]
  - Colostomy [Unknown]
  - White blood cell count increased [Unknown]
